FAERS Safety Report 9606005 (Version 2)
Quarter: 2013Q4

REPORT INFORMATION
  Report Type: Spontaneous
  Country: US (occurrence: US)
  Receive Date: 20131008
  Receipt Date: 20131008
  Transmission Date: 20140711
  Serious: No
  Sender: FDA-Public Use
  Company Number: US-AMGEN-USASP2013038047

PATIENT
  Age: 86 Year
  Sex: Female
  Weight: 62.13 kg

DRUGS (2)
  1. PROLIA [Suspect]
     Indication: OSTEOPOROSIS POSTMENOPAUSAL
     Dosage: 60 MG, Q6MO
     Route: 058
     Dates: start: 20130318
  2. ANASTROZOLE [Concomitant]
     Indication: MASTECTOMY
     Dosage: 1 MG, QD
     Route: 048
     Dates: start: 2012

REACTIONS (6)
  - Injection site rash [Recovered/Resolved]
  - Blister [Unknown]
  - Injection site pain [Recovered/Resolved]
  - Rash papular [Unknown]
  - Rash [Not Recovered/Not Resolved]
  - Pain in extremity [Not Recovered/Not Resolved]
